FAERS Safety Report 24383613 (Version 1)
Quarter: 2024Q4

REPORT INFORMATION
  Report Type: Spontaneous
  Country: US (occurrence: None)
  Receive Date: 20241001
  Receipt Date: 20241001
  Transmission Date: 20250114
  Serious: Yes (Hospitalization)
  Sender: Public
  Company Number: None

PATIENT
  Sex: Female
  Weight: 63 kg

DRUGS (2)
  1. CYTARABINE [Suspect]
     Active Substance: CYTARABINE
     Dates: start: 20240615, end: 20240904
  2. DAUNORUBICIN [Suspect]
     Active Substance: DAUNORUBICIN

REACTIONS (7)
  - Pyrexia [None]
  - Neutropenia [None]
  - Neutropenic colitis [None]
  - Nausea [None]
  - Vomiting [None]
  - Diarrhoea [None]
  - Clostridium test positive [None]

NARRATIVE: CASE EVENT DATE: 20240918
